FAERS Safety Report 15099064 (Version 3)
Quarter: 2018Q3

REPORT INFORMATION
  Report Type: Spontaneous
  Country: MY (occurrence: MY)
  Receive Date: 20180702
  Receipt Date: 20180705
  Transmission Date: 20181010
  Serious: Yes (Life-Threatening, Other)
  Sender: FDA-Public Use
  Company Number: MY-PFIZER INC-2018240046

PATIENT
  Age: 59 Year
  Sex: Female

DRUGS (1)
  1. LEVOPHED [Suspect]
     Active Substance: NOREPINEPHRINE BITARTRATE
     Indication: SEPTIC SHOCK
     Dosage: 8 MG OF LEVOPHED SF IN 50CC DEXTROSE 5%
     Route: 042
     Dates: start: 20180604, end: 20180604

REACTIONS (7)
  - Cyanosis [Unknown]
  - Heart rate increased [Unknown]
  - Hypertension [Recovering/Resolving]
  - Restlessness [Unknown]
  - Dyspnoea [Unknown]
  - Vasoconstriction [Unknown]
  - Anaphylactic shock [Recovering/Resolving]

NARRATIVE: CASE EVENT DATE: 20180604
